FAERS Safety Report 9397835 (Version 1)
Quarter: 2013Q3

REPORT INFORMATION
  Report Type: Spontaneous
  Country: ES (occurrence: ES)
  Receive Date: 20130712
  Receipt Date: 20130712
  Transmission Date: 20140515
  Serious: Yes (Hospitalization)
  Sender: FDA-Public Use
  Company Number: ES-BAYER-2013-082102

PATIENT
  Age: 76 Year
  Sex: Female

DRUGS (10)
  1. ADIRO 100 [Suspect]
     Dosage: 100 MG, QD
     Route: 048
     Dates: start: 20121027, end: 20121103
  2. CLEXANE [Interacting]
     Indication: PULMONARY EMBOLISM
     Dosage: 60 MG, BID
     Route: 058
     Dates: start: 20121027, end: 20121102
  3. CARVEDILOL [Concomitant]
     Indication: HYPERTENSION
     Dosage: 3.13 MG, BID
     Route: 048
     Dates: start: 20121031
  4. ENALAPRIL [Concomitant]
     Indication: HYPERTENSION
     Dosage: 2.5 MG, BID
     Route: 048
     Dates: start: 20121031
  5. ESPIRONOLACTONA [Concomitant]
     Indication: CARDIAC FAILURE CONGESTIVE
     Dosage: 25 MG, QD
     Route: 048
     Dates: start: 20121030
  6. FUROSEMIDA [Concomitant]
     Indication: CARDIAC FAILURE CONGESTIVE
     Dosage: 20 MG, QID
     Route: 042
     Dates: start: 20121030
  7. MEROPENEM [Concomitant]
     Indication: UROSEPSIS
     Dosage: 1 G, TID
     Route: 042
     Dates: start: 20121027
  8. METAMIZOL [Concomitant]
     Indication: PAIN
     Dosage: 575 MG, TID
     Route: 048
     Dates: start: 20121027
  9. METRONIDAZOL [Concomitant]
     Indication: VOMITING
     Dosage: 10 MG, TID
     Route: 042
     Dates: start: 20121029, end: 20121102
  10. PANTOPRAZOLE [Concomitant]
     Indication: PROPHYLAXIS AGAINST GASTROINTESTINAL ULCER
     Dosage: 40 MG, QD
     Route: 042
     Dates: start: 20121029

REACTIONS (2)
  - Anaemia [Recovered/Resolved]
  - Muscle haemorrhage [Recovered/Resolved]
